FAERS Safety Report 4649215-8 (Version None)
Quarter: 2005Q2

REPORT INFORMATION
  Report Type: 
  Country: None (occurrence: None)
  Receive Date: 20050331
  Receipt Date: 20050103
  Transmission Date: 20051028
  Serious: No
  Sender: FDA-Public Use
  Company Number: 05P-163-0285385-00

PATIENT
  Age: 79 Year
  Sex: Female
  Weight: 90.7194 kg

DRUGS (6)
  1. HUMIRA [Suspect]
     Indication: RHEUMATOID ARTHRITIS
     Dosage: 40 MG, 2 IN 1 M, SUBCUTANEOUS;  40 MG, 2 IN 1 M, SUBCUTANEOUS
     Route: 058
     Dates: start: 20040101, end: 20041201
  2. HUMIRA [Suspect]
     Indication: RHEUMATOID ARTHRITIS
     Dosage: 40 MG, 2 IN 1 M, SUBCUTANEOUS;  40 MG, 2 IN 1 M, SUBCUTANEOUS
     Route: 058
     Dates: start: 20041201
  3. EPOGEN [Concomitant]
  4. VITAMINS [Concomitant]
  5. HEART PILL [Concomitant]
  6. BLOOD PRESSURE PILL [Concomitant]

REACTIONS (1)
  - INFLUENZA [None]
